FAERS Safety Report 19610427 (Version 2)
Quarter: 2021Q3

REPORT INFORMATION
  Report Type: Report from Study
  Country: US (occurrence: US)
  Receive Date: 20210726
  Receipt Date: 20210826
  Transmission Date: 20211014
  Serious: Yes (Hospitalization)
  Sender: FDA-Public Use
  Company Number: US-TAKEDA-2021TUS031991

PATIENT
  Age: 1 Year
  Sex: Female
  Weight: 9.45 kg

DRUGS (12)
  1. TEDUGLUTIDE [Suspect]
     Active Substance: TEDUGLUTIDE
     Indication: SHORT-BOWEL SYNDROME
     Dosage: 0.35 MICROGRAM, QD
     Route: 058
     Dates: start: 20201220
  2. TEDUGLUTIDE [Suspect]
     Active Substance: TEDUGLUTIDE
     Indication: GASTROINTESTINAL DISORDER
     Dosage: 0.5 MILLIGRAM, QD
     Route: 058
     Dates: start: 20201216
  3. TEDUGLUTIDE [Suspect]
     Active Substance: TEDUGLUTIDE
     Indication: GASTROINTESTINAL DISORDER
     Dosage: 0.5 MILLIGRAM, QD
     Route: 058
     Dates: start: 20201216
  4. TEDUGLUTIDE [Suspect]
     Active Substance: TEDUGLUTIDE
     Indication: SHORT-BOWEL SYNDROME
     Dosage: 0.35 MICROGRAM, QD
     Route: 058
     Dates: start: 20201220
  5. TEDUGLUTIDE [Suspect]
     Active Substance: TEDUGLUTIDE
     Indication: SHORT-BOWEL SYNDROME
     Dosage: 0.35 MICROGRAM, QD
     Route: 058
     Dates: start: 20201220
  6. TEDUGLUTIDE [Suspect]
     Active Substance: TEDUGLUTIDE
     Dosage: 0.04 MILLILITER, QD
     Route: 058
     Dates: start: 202012
  7. TEDUGLUTIDE [Suspect]
     Active Substance: TEDUGLUTIDE
     Indication: GASTROINTESTINAL DISORDER
     Dosage: 0.5 MILLIGRAM, QD
     Route: 058
     Dates: start: 20201216
  8. TEDUGLUTIDE [Suspect]
     Active Substance: TEDUGLUTIDE
     Dosage: 0.04 MILLILITER, QD
     Route: 058
     Dates: start: 202012
  9. TEDUGLUTIDE [Suspect]
     Active Substance: TEDUGLUTIDE
     Dosage: 0.04 MILLILITER, QD
     Route: 058
     Dates: start: 202012
  10. TEDUGLUTIDE [Suspect]
     Active Substance: TEDUGLUTIDE
     Indication: SHORT-BOWEL SYNDROME
     Dosage: 0.35 MICROGRAM, QD
     Route: 058
     Dates: start: 20201220
  11. TEDUGLUTIDE [Suspect]
     Active Substance: TEDUGLUTIDE
     Indication: GASTROINTESTINAL DISORDER
     Dosage: 0.5 MILLIGRAM, QD
     Route: 058
     Dates: start: 20201216
  12. TEDUGLUTIDE [Suspect]
     Active Substance: TEDUGLUTIDE
     Dosage: 0.04 MILLILITER, QD
     Route: 058
     Dates: start: 202012

REACTIONS (6)
  - Gastrointestinal bacterial overgrowth [Recovering/Resolving]
  - Weight increased [Unknown]
  - Weight decreased [Recovering/Resolving]
  - Vomiting [Not Recovered/Not Resolved]
  - Product dose omission issue [Unknown]
  - Pyrexia [Recovered/Resolved]

NARRATIVE: CASE EVENT DATE: 20210629
